FAERS Safety Report 19379063 (Version 2)
Quarter: 2021Q2

REPORT INFORMATION
  Report Type: Report from Study
  Country: None (occurrence: FR)
  Receive Date: 20210607
  Receipt Date: 20210622
  Transmission Date: 20210717
  Serious: Yes (Other)
  Sender: FDA-Public Use
  Company Number: FR-ABBVIE-19K-056-2856754-00

PATIENT
  Age: 74 Year
  Sex: Female
  Weight: 65 kg

DRUGS (17)
  1. VENCLYXTO [Suspect]
     Active Substance: VENETOCLAX
     Route: 048
     Dates: start: 20190212, end: 20190219
  2. LEVOTHYROXINE. [Concomitant]
     Active Substance: LEVOTHYROXINE
     Indication: POST PROCEDURAL HYPOTHYROIDISM
  3. WELLVONE [Concomitant]
     Active Substance: ATOVAQUONE
     Indication: INFECTION PROPHYLAXIS
     Dates: start: 20190215
  4. GAVISCON [MAGNESIUM ALGINATE;SODIUM ALGINATE] [Concomitant]
     Indication: DYSPEPSIA
  5. VALACICLOVIR [Concomitant]
     Active Substance: VALACYCLOVIR HYDROCHLORIDE
     Indication: INFECTION PROPHYLAXIS
     Dates: start: 20190326
  6. VENCLYXTO [Suspect]
     Active Substance: VENETOCLAX
     Route: 048
     Dates: start: 20190220, end: 20190226
  7. KARDEGIC [Concomitant]
     Active Substance: ASPIRIN DL-LYSINE
     Indication: TRANSIENT ISCHAEMIC ATTACK
     Dates: start: 1999
  8. IMBRUVICA [Suspect]
     Active Substance: IBRUTINIB
     Indication: CHRONIC LYMPHOCYTIC LEUKAEMIA
     Route: 065
     Dates: start: 20180326, end: 20190228
  9. BINOCRIT [Concomitant]
     Active Substance: ERYTHROPOIETIN
     Indication: ANAEMIA
     Dates: start: 201810
  10. FASTURTEC [Concomitant]
     Active Substance: RASBURICASE
     Indication: PROPHYLAXIS
     Dates: start: 20190206, end: 20190227
  11. FENOFIBRATE. [Concomitant]
     Active Substance: FENOFIBRATE
     Indication: CEREBROVASCULAR ACCIDENT PROPHYLAXIS
  12. VENCLYXTO [Suspect]
     Active Substance: VENETOCLAX
     Indication: CHRONIC LYMPHOCYTIC LEUKAEMIA
     Route: 048
     Dates: start: 20190207, end: 20190211
  13. VENCLYXTO [Suspect]
     Active Substance: VENETOCLAX
     Route: 048
     Dates: start: 20190227
  14. UVEDOSE [Concomitant]
     Active Substance: CHOLECALCIFEROL
     Indication: VITAMIN SUPPLEMENTATION
  15. LEVOTHYROXINE. [Concomitant]
     Active Substance: LEVOTHYROXINE
     Indication: THYROIDECTOMY
  16. ALLOPURINOL. [Concomitant]
     Active Substance: ALLOPURINOL
     Indication: PROPHYLAXIS
     Dates: start: 20190214
  17. NISIS [Concomitant]
     Active Substance: VALSARTAN
     Indication: HYPERTENSION

REACTIONS (19)
  - Hyperphosphataemia [Recovered/Resolved]
  - Lymphopenia [Not Recovered/Not Resolved]
  - Neutropenia [Recovered/Resolved]
  - Diarrhoea [Recovered/Resolved]
  - Blood uric acid increased [Recovered/Resolved]
  - Thrombocytopenia [Recovered/Resolved]
  - Hyperkalaemia [Recovered/Resolved]
  - Hyperkalaemia [Recovered/Resolved]
  - Oedema peripheral [Recovering/Resolving]
  - Asthenia [Not Recovered/Not Resolved]
  - Rhinitis allergic [Not Recovered/Not Resolved]
  - Gamma-glutamyltransferase increased [Recovered/Resolved]
  - Skin lesion [Recovered/Resolved]
  - Urinary tract infection [Recovered/Resolved]
  - Viral infection [Recovered/Resolved]
  - Fatigue [Recovered/Resolved]
  - Off label use [Recovered/Resolved]
  - Viral infection [Recovered/Resolved]
  - Influenza [Recovered/Resolved]

NARRATIVE: CASE EVENT DATE: 20190207
